FAERS Safety Report 5055002-1 (Version None)
Quarter: 2006Q3

REPORT INFORMATION
  Report Type: 
  Country: None (occurrence: None)
  Receive Date: 20060719
  Receipt Date: 20060713
  Transmission Date: 20061208
  Serious: Yes (Other)
  Sender: FDA-Public Use
  Company Number: GB-GLAXOSMITHKLINE-B0430923A

PATIENT
  Age: 70 Year
  Sex: Male

DRUGS (2)
  1. VENTOLIN [Suspect]
     Indication: ASTHMA
     Dosage: 100MCG TWICE PER DAY
     Route: 055
     Dates: start: 19980701
  2. UNKNOWN MEDICATION [Concomitant]

REACTIONS (2)
  - DIZZINESS [None]
  - VISUAL ACUITY REDUCED [None]
